FAERS Safety Report 7901083-4 (Version None)
Quarter: 2011Q4

REPORT INFORMATION
  Report Type: 
  Country: None (occurrence: None)
  Receive Date: 20111108
  Receipt Date: 20111031
  Transmission Date: 20120403
  Serious: Yes (Hospitalization, Other)
  Sender: FDA-Public Use
  Company Number: CH-ELI_LILLY_AND_COMPANY-CH201011000887

PATIENT
  Sex: Male
  Weight: 85 kg

DRUGS (1)
  1. EFFIENT [Suspect]
     Dosage: UNK, UNKNOWN
     Route: 065
     Dates: start: 20100825

REACTIONS (4)
  - ANGINA PECTORIS [None]
  - CHEST PAIN [None]
  - IN-STENT CORONARY ARTERY RESTENOSIS [None]
  - MYOCARDIAL ISCHAEMIA [None]
